FAERS Safety Report 8037378-6 (Version None)
Quarter: 2012Q1

REPORT INFORMATION
  Report Type: 
  Country: None (occurrence: None)
  Receive Date: 20120111
  Receipt Date: 20120107
  Transmission Date: 20120608
  Serious: No
  Sender: FDA-Public Use
  Company Number: US-B.I. PHARMACEUTICALS,INC./RIDGEFIELD-2012-BP-00385BP

PATIENT
  Sex: Female

DRUGS (2)
  1. ZANTAC 75 [Suspect]
     Indication: DYSPEPSIA
     Dosage: 75 MG
     Route: 048
     Dates: start: 20120107, end: 20120107
  2. CLONIDINE [Concomitant]
     Indication: HYPERTENSION
     Dosage: 0.04 MG
     Route: 048

REACTIONS (2)
  - ORAL DISCOMFORT [None]
  - PRURITUS GENERALISED [None]
